FAERS Safety Report 6328555-0 (Version None)
Quarter: 2009Q3

REPORT INFORMATION
  Report Type: 
  Country: None (occurrence: None)
  Receive Date: 20090825
  Receipt Date: 20090825
  Transmission Date: 20100115
  Serious: No
  Sender: FDA-Public Use
  Company Number: None

PATIENT
  Sex: Male
  Weight: 85.6 kg

DRUGS (2)
  1. ADDERALL XR 30 [Suspect]
     Dates: start: 20090401
  2. ADDERALL 10 [Suspect]

REACTIONS (2)
  - ABNORMAL BEHAVIOUR [None]
  - FATIGUE [None]
